FAERS Safety Report 12625083 (Version 1)
Quarter: 2016Q3

REPORT INFORMATION
  Report Type: Spontaneous
  Country: US (occurrence: US)
  Receive Date: 20160805
  Receipt Date: 20160805
  Transmission Date: 20161109
  Serious: No
  Sender: FDA-Public Use
  Company Number: US-ASTRAZENECA-2016SE60863

PATIENT
  Age: 25354 Day
  Sex: Male
  Weight: 106.6 kg

DRUGS (2)
  1. BYDUREON [Suspect]
     Active Substance: EXENATIDE
     Indication: WEIGHT DECREASED
     Route: 058
     Dates: start: 2016
  2. BYDUREON [Suspect]
     Active Substance: EXENATIDE
     Indication: BLOOD GLUCOSE DECREASED
     Route: 058
     Dates: start: 2016

REACTIONS (5)
  - Injection site nodule [Unknown]
  - Product quality issue [Unknown]
  - Injection site extravasation [Unknown]
  - Underdose [Unknown]
  - Fungal infection [Unknown]

NARRATIVE: CASE EVENT DATE: 20160602
